FAERS Safety Report 9720338 (Version 1)
Quarter: 2013Q4

REPORT INFORMATION
  Report Type: Spontaneous
  Country: US (occurrence: US)
  Receive Date: 20131129
  Receipt Date: 20131129
  Transmission Date: 20140711
  Serious: Yes (Other)
  Sender: FDA-Public Use
  Company Number: CHPA2013US017626

PATIENT
  Age: 71 Year
  Sex: Female

DRUGS (2)
  1. MAALOX ADV MAXIMUM STRENGTH ANTACID/ANTIGAS [Suspect]
     Indication: DYSPEPSIA
     Dosage: 1-2 TABLESPOONFULS; PRN
     Route: 048
  2. MAALOX ANTACID LIQ EXT STR LEMON [Suspect]
     Indication: DYSPEPSIA
     Dosage: 1-2 TABLESPOONFULS; PRN
     Route: 048

REACTIONS (4)
  - Breast cancer [Recovered/Resolved]
  - Large intestine polyp [Recovered/Resolved]
  - Incorrect dose administered [Unknown]
  - Therapeutic response unexpected [Unknown]
